FAERS Safety Report 5144949-3 (Version None)
Quarter: 2006Q4

REPORT INFORMATION
  Report Type: 
  Country: None (occurrence: None)
  Receive Date: 20061107
  Receipt Date: 20060717
  Transmission Date: 20070319
  Serious: Yes (Life-Threatening, Hospitalization, Disabling, Other)
  Sender: FDA-Public Use
  Company Number: US-BAYER-200614646BWH

PATIENT
  Age: 77 Year
  Sex: Male
  Weight: 77 kg

DRUGS (3)
  1. LEVITRA [Suspect]
     Indication: ERECTILE DYSFUNCTION
     Dosage: TOTAL DAILY DOSE: 10 MG  UNIT DOSE: 10 MG
     Route: 048
     Dates: start: 20050101, end: 20060715
  2. ASPIRIN [Suspect]
     Route: 048
  3. ENALAPRIL MALEATE [Concomitant]
     Route: 048

REACTIONS (4)
  - APHASIA [None]
  - CEREBRAL HAEMORRHAGE [None]
  - HEMIPARESIS [None]
  - HYPOKINESIA [None]
